FAERS Safety Report 7237404-8 (Version None)
Quarter: 2011Q1

REPORT INFORMATION
  Report Type: 
  Country: None (occurrence: None)
  Receive Date: 20110121
  Receipt Date: 20110112
  Transmission Date: 20110831
  Serious: Yes (Other)
  Sender: FDA-Public Use
  Company Number: US-PFIZER INC-2011008347

PATIENT
  Age: 54 Year
  Sex: Female

DRUGS (4)
  1. FLONASE [Concomitant]
     Dosage: UNK
  2. LOTENSIN [Concomitant]
     Dosage: 10 MG, DAILY
  3. ACETYLSALICYLIC ACID [Concomitant]
     Dosage: UNK, DAILY
  4. LIPITOR [Suspect]
     Indication: HYPERLIPIDAEMIA
     Dosage: 10 MG, DAILY
     Route: 048
     Dates: end: 20101201

REACTIONS (8)
  - ARTHRALGIA [None]
  - BLOOD TRIGLYCERIDES ABNORMAL [None]
  - MYALGIA [None]
  - LOW DENSITY LIPOPROTEIN ABNORMAL [None]
  - SWOLLEN TONGUE [None]
  - LIP SWELLING [None]
  - HIGH DENSITY LIPOPROTEIN ABNORMAL [None]
  - PARAESTHESIA ORAL [None]
